FAERS Safety Report 17397396 (Version 2)
Quarter: 2020Q1

REPORT INFORMATION
  Report Type: Report from Study
  Country: BR (occurrence: BR)
  Receive Date: 20200210
  Receipt Date: 20200220
  Transmission Date: 20200409
  Serious: Yes (Hospitalization, Other)
  Sender: FDA-Public Use
  Company Number: NVSC2020BR033223

PATIENT
  Age: 11 Year
  Sex: Male

DRUGS (2)
  1. IMATINIB. [Suspect]
     Active Substance: IMATINIB MESYLATE
     Indication: CHRONIC MYELOID LEUKAEMIA
     Dosage: UNK (USED FOR 2 MONTHS)
     Route: 065
     Dates: start: 201909
  2. TASIGNA [Suspect]
     Active Substance: NILOTINIB
     Indication: CHRONIC MYELOID LEUKAEMIA
     Dosage: 3 DF, QD(1 TABLET IN THE MORNING AND 2 TABLETS AT NIGHT)
     Route: 065

REACTIONS (7)
  - Chronic myeloid leukaemia transformation [Unknown]
  - Eye swelling [Recovered/Resolved]
  - Cytogenetic analysis abnormal [Unknown]
  - Swelling of eyelid [Recovered/Resolved]
  - Splenomegaly [Recovered/Resolved]
  - Inappropriate schedule of product administration [Not Recovered/Not Resolved]
  - Cough [Unknown]

NARRATIVE: CASE EVENT DATE: 201909
